FAERS Safety Report 17036687 (Version 2)
Quarter: 2019Q4

REPORT INFORMATION
  Report Type: Report from Study
  Country: PL (occurrence: PL)
  Receive Date: 20191115
  Receipt Date: 20191212
  Transmission Date: 20200122
  Serious: Yes (Hospitalization)
  Sender: FDA-Public Use
  Company Number: PL-AMERICAN REGENT INC-2019002541

PATIENT
  Age: 82 Year
  Sex: Female
  Weight: 61.5 kg

DRUGS (29)
  1. FERINJECT [Suspect]
     Active Substance: FERRIC CARBOXYMALTOSE
     Indication: IRON DEFICIENCY
  2. POTASSIUM CHLORIDE. [Concomitant]
     Active Substance: POTASSIUM CHLORIDE
     Indication: PROPHYLAXIS
     Dosage: 1200 MILLIGRAM (600 MILLIGRAM, 2 IN 1 D)
     Route: 048
     Dates: start: 201805, end: 20190216
  3. PANTOPRAZOLE [Concomitant]
     Active Substance: PANTOPRAZOLE
     Indication: GASTROINTESTINAL DISORDER PROPHYLAXIS
     Dosage: 20 MG (20 MILLIGRAM, 1 IN 1D)
     Route: 048
     Dates: start: 20190126, end: 20190205
  4. FENOTEROLI HYDROBROMIDUM/IPRATROPII BROMIDUM [Concomitant]
     Dosage: 60 GTT DROPS (15 GTT, 4 IN 1 D)
     Dates: start: 20190228
  5. FUROSEMIDUM                        /00032601/ [Concomitant]
     Active Substance: FUROSEMIDE SODIUM
     Indication: CARDIAC FAILURE
     Dosage: 80 MG (80 MILLIGRAM, 1 IN 1D)
     Route: 042
     Dates: start: 20190425, end: 20190428
  6. FUROSEMIDUM                        /00032601/ [Concomitant]
     Active Substance: FUROSEMIDE SODIUM
     Dosage: 20 MG (20 MG, 1 IN 1D)
     Route: 042
     Dates: start: 20190429, end: 20190429
  7. CHLORTALIDONUM [Concomitant]
     Dosage: 25 MG (25 MILLIGRAM, 1 IN 1D)
     Route: 048
     Dates: start: 20190503
  8. TELMISARTANUM [Concomitant]
     Dosage: 40 MG (40 MILLIGRAM, 1 IN 1 D)
     Route: 048
     Dates: start: 20190219, end: 20190221
  9. BUDESONIDUM [Concomitant]
     Active Substance: BUDESONIDE
     Indication: CHRONIC OBSTRUCTIVE PULMONARY DISEASE
     Dosage: 1 MG (0.5 MG, 2 IN 1 D)
     Dates: start: 20190204, end: 20190216
  10. POTASSIUM CHLORIDE. [Concomitant]
     Active Substance: POTASSIUM CHLORIDE
     Dosage: 1200 MILLIGRAM (600 MILLIGRAM, 2 IN 1 D)
     Route: 048
     Dates: start: 20190228, end: 20190425
  11. METOPROLOL. [Concomitant]
     Active Substance: METOPROLOL
     Indication: ATRIAL FIBRILLATION
     Dosage: 200 MILLIGRAM (100 MG, 2 IN 1 D)
     Route: 048
     Dates: start: 201805, end: 20190216
  12. FUROSEMIDUM                        /00032601/ [Concomitant]
     Active Substance: FUROSEMIDE SODIUM
     Dosage: 80 MILLIGRAM (40 MG, 2 IN 1 D)
     Route: 048
     Dates: start: 20190503
  13. POTASSIUM CHLORIDE. [Concomitant]
     Active Substance: POTASSIUM CHLORIDE
     Dosage: 2400 MILLIGRAM (1200 MILLIGRAM, 2 IN 1 D)
     Route: 048
     Dates: start: 20190426, end: 20190503
  14. FENOTEROLI HYDROBROMIDUM/IPRATROPII BROMIDUM [Concomitant]
     Indication: CHRONIC OBSTRUCTIVE PULMONARY DISEASE
     Dosage: 40 GTT DROPS (20, GTT 2 IN 1 D)
     Dates: start: 20190129, end: 20190203
  15. FENOTEROLI HYDROBROMIDUM/IPRATROPII BROMIDUM [Concomitant]
     Dosage: 60 GTT DROPS (15 GTT, 4 IN 1 D)
     Route: 055
     Dates: start: 20190204, end: 20190216
  16. CHLORTALIDONUM [Concomitant]
     Indication: CARDIAC FAILURE
     Dosage: 25 MG (25 MILLIGRAM, 1 IN 1D)
     Route: 048
     Dates: start: 20190129, end: 20190216
  17. POTASSIUM CHLORIDE. [Concomitant]
     Active Substance: POTASSIUM CHLORIDE
     Dosage: 1200 MILLIGRAM (600 MILLIGRAM, 2 IN 1 D)
     Route: 048
     Dates: start: 20190218, end: 20190218
  18. METOPROLOL. [Concomitant]
     Active Substance: METOPROLOL
     Indication: HYPERTENSION
     Dosage: 100 MILLIGRAM (50 MG, 2 IN 1D)
     Route: 048
     Dates: start: 20190228
  19. PANTOPRAZOLE [Concomitant]
     Active Substance: PANTOPRAZOLE
     Dosage: 40 MG (40 MILLIGRAM, 1 IN 1D)
     Route: 048
     Dates: start: 20190206, end: 20190216
  20. CHLORTALIDONUM [Concomitant]
     Indication: HYPERTENSION
     Dosage: 25 MG (25 MILLIGRAM, 1 IN 1D)
     Route: 048
     Dates: start: 20190218, end: 20190219
  21. ROSUVASTATIN. [Concomitant]
     Active Substance: ROSUVASTATIN
     Indication: HYPERLIPIDAEMIA
     Dosage: 5 MG (5 MG, 1 IN 1 D)
     Route: 048
     Dates: start: 201805
  22. PANTOPRAZOLE [Concomitant]
     Active Substance: PANTOPRAZOLE
     Dosage: 40 MG (40 MILLIGRAM, 1 IN 1D)
     Route: 048
     Dates: start: 20190218
  23. TELMISARTANUM [Concomitant]
     Dosage: 20 MG (20 MILLIGRAM, 1 IN 1 D)
     Route: 048
     Dates: start: 20190222
  24. BUDESONIDUM [Concomitant]
     Active Substance: BUDESONIDE
     Dosage: 1 MG (0.5 MG, 2 IN 1 D)
     Dates: start: 20190218
  25. TELMISARTANUM [Concomitant]
     Indication: HYPERTENSION
     Dosage: 80 MG (80 MILLIGRAM, 1 IN 1 D)
     Route: 048
     Dates: start: 20190130, end: 20190216
  26. FERINJECT [Suspect]
     Active Substance: FERRIC CARBOXYMALTOSE
     Indication: CARDIAC FAILURE ACUTE
     Dosage: 10 MILLILITER (2 KITS)
     Dates: start: 20190130, end: 20190130
  27. POTASSIUM CHLORIDE. [Concomitant]
     Active Substance: POTASSIUM CHLORIDE
     Dosage: 1200 MILLIGRAM (600 MILLIGRAM, 2 IN 1 D)
     Route: 048
     Dates: start: 20190503
  28. TELMISARTANUM [Concomitant]
     Dosage: 80 MG (80 MILLIGRAM, 1 IN 1 D)
     Route: 048
     Dates: start: 20190218, end: 20190218
  29. ALLOPURINOL. [Concomitant]
     Active Substance: ALLOPURINOL
     Indication: HYPERURICAEMIA
     Dosage: 300 MILLIGRAM (30 MG, 1 IN1 D)
     Route: 048
     Dates: start: 20190503

REACTIONS (1)
  - Cardiac failure [Recovered/Resolved]

NARRATIVE: CASE EVENT DATE: 20191031
